FAERS Safety Report 8984273 (Version 2)
Quarter: 2013Q1

REPORT INFORMATION
  Report Type: Spontaneous
  Country: BR (occurrence: BR)
  Receive Date: 20121226
  Receipt Date: 20130226
  Transmission Date: 20140127
  Serious: No
  Sender: FDA-Public Use
  Company Number: PHHY2012BR117900

PATIENT
  Sex: Female
  Weight: 73 kg

DRUGS (4)
  1. FORASEQ [Suspect]
     Indication: DYSPNOEA
     Dosage: 2 DF
  2. ANTI-INFLAMMATORY [Suspect]
     Indication: ARTHRALGIA
     Dosage: UNK UKN, UNK
  3. LOSARTAN POTASSIUM [Concomitant]
     Indication: HYPERTENSION
     Dosage: 100 MG, UNK
     Route: 048
  4. IRON [Concomitant]
     Indication: ANAEMIA
     Dosage: UNK UKN, UNK
     Route: 048

REACTIONS (2)
  - Anaemia [Unknown]
  - Fatigue [Unknown]
